FAERS Safety Report 6646621-7 (Version None)
Quarter: 2010Q1

REPORT INFORMATION
  Report Type: 
  Country: None (occurrence: None)
  Receive Date: 20100323
  Receipt Date: 20100318
  Transmission Date: 20100710
  Serious: Yes (Hospitalization)
  Sender: FDA-Public Use
  Company Number: US-B.I. PHARMACEUTICALS,INC./RIDGEFIELD-2010-BP-01721BP

PATIENT
  Sex: Female

DRUGS (11)
  1. SPIRIVA [Suspect]
     Indication: CHRONIC OBSTRUCTIVE PULMONARY DISEASE
     Dosage: 18 MCG
     Route: 055
     Dates: start: 20060101, end: 20070401
  2. SPIRIVA [Suspect]
     Indication: ASTHMA
  3. ADVAIR DISKUS 100/50 [Concomitant]
     Indication: ASTHMA
     Dosage: 2 PUF
     Route: 055
  4. SINGULAIR [Concomitant]
     Indication: ASTHMA
     Dosage: 10 MG
     Route: 048
  5. PROAIR HFA [Concomitant]
     Indication: ASTHMA
     Dosage: 8 PUF
     Route: 055
  6. PREDNISONE [Concomitant]
  7. LASIX [Concomitant]
     Dosage: 40 MG
  8. GABAPENTIN [Concomitant]
     Dosage: 2400 MG
  9. SYNTHROID [Concomitant]
     Dosage: 0.112 MCG
  10. EFFEXOR XR [Concomitant]
     Dosage: 150 MG
  11. OXYCODONE HCL [Concomitant]

REACTIONS (2)
  - ACUTE RESPIRATORY FAILURE [None]
  - ASTHMA [None]
